FAERS Safety Report 8984096 (Version 1)
Quarter: 2012Q4

REPORT INFORMATION
  Report Type: Spontaneous
  Country: US (occurrence: None)
  Receive Date: 20121213
  Receipt Date: 20121213
  Transmission Date: 20130627
  Serious: Yes (Hospitalization, Other)
  Sender: FDA-Public Use
  Company Number: 20120740

PATIENT
  Age: 65 Year
  Sex: Male

DRUGS (7)
  1. VENOFER [Suspect]
     Indication: IRON DEFICIENCY ANEMIA
     Dosage: 200 mg over 30
     Dates: start: 20121113, end: 20121117
  2. ENOXAPARIN [Suspect]
     Indication: DEEP VEIN THROMBOSIS
     Dosage: dose and frequency
  3. METFORMIN [Concomitant]
  4. MAXZIDE [Concomitant]
  5. SIMVASTATIN [Concomitant]
  6. CYMBALTA [Concomitant]
  7. ARMOUR THYROID [Concomitant]

REACTIONS (2)
  - Deep vein thrombosis [None]
  - Gastrointestinal haemorrhage [None]
